FAERS Safety Report 14020837 (Version 1)
Quarter: 2017Q3

REPORT INFORMATION
  Report Type: Other
  Country: None (occurrence: US)
  Receive Date: 20170928
  Receipt Date: 20170928
  Transmission Date: 20171128
  Serious: Yes (Hospitalization, Other)
  Sender: FDA-Public Use
  Company Number: US-MLMSERVICE-20170919-0896377-1

PATIENT
  Age: 27 Year
  Sex: Male

DRUGS (2)
  1. NITROUS OXIDE. [Suspect]
     Active Substance: NITROUS OXIDE
     Indication: DENTAL OPERATION
     Route: 055
  2. NITROUS OXIDE. [Suspect]
     Active Substance: NITROUS OXIDE
     Route: 055

REACTIONS (9)
  - Paraesthesia [Recovering/Resolving]
  - Ataxia [Recovering/Resolving]
  - Gait disturbance [Recovering/Resolving]
  - Condition aggravated [Recovering/Resolving]
  - Vitamin B12 deficiency [Recovering/Resolving]
  - Fall [Recovering/Resolving]
  - Radiculopathy [Recovering/Resolving]
  - Toxicity to various agents [Recovering/Resolving]
  - Drug use disorder [Recovering/Resolving]
